FAERS Safety Report 14044833 (Version 1)
Quarter: 2017Q4

REPORT INFORMATION
  Report Type: Spontaneous
  Country: US (occurrence: US)
  Receive Date: 20171005
  Receipt Date: 20171005
  Transmission Date: 20180321
  Serious: No
  Sender: FDA-Public Use
  Company Number: US-INDIVIOR LIMITED-INDV-100783-2017

PATIENT
  Sex: Male

DRUGS (1)
  1. SUBOXONE [Suspect]
     Active Substance: BUPRENORPHINE HYDROCHLORIDE\NALOXONE HYDROCHLORIDE
     Indication: TOOTHACHE
     Dosage: ABOUT QUARTER OF AN 8 MG
     Route: 065

REACTIONS (7)
  - Tooth fracture [Unknown]
  - Substance abuse [Unknown]
  - Chest discomfort [Unknown]
  - Product preparation error [Unknown]
  - Toothache [Unknown]
  - Condition aggravated [Unknown]
  - Pain in jaw [Unknown]
